FAERS Safety Report 16780008 (Version 1)
Quarter: 2019Q3

REPORT INFORMATION
  Report Type: Report from Study
  Country: KW (occurrence: KW)
  Receive Date: 20190906
  Receipt Date: 20190906
  Transmission Date: 20191005
  Serious: Yes (Hospitalization)
  Sender: FDA-Public Use
  Company Number: PHHY2019KW206265

PATIENT
  Age: 39 Year
  Sex: Female

DRUGS (1)
  1. KISQALI [Suspect]
     Active Substance: RIBOCICLIB
     Indication: BREAST CANCER METASTATIC
     Dosage: 600 MG, QD
     Route: 048
     Dates: start: 20190827

REACTIONS (3)
  - Platelet count decreased [Unknown]
  - Decreased appetite [Unknown]
  - Haematemesis [Unknown]

NARRATIVE: CASE EVENT DATE: 20190901
